FAERS Safety Report 11840465 (Version 1)
Quarter: 2015Q4

REPORT INFORMATION
  Report Type: Spontaneous
  Country: US (occurrence: None)
  Receive Date: 20151215
  Receipt Date: 20151215
  Transmission Date: 20160305
  Serious: No
  Sender: FDA-Public Use
  Company Number: None

PATIENT
  Age: 4 Year
  Sex: Male
  Weight: 30 kg

DRUGS (10)
  1. FUROSEMIDE. [Concomitant]
     Active Substance: FUROSEMIDE
  2. METHYLPREDNISOLONE. [Concomitant]
     Active Substance: METHYLPREDNISOLONE
  3. NACL [Concomitant]
     Active Substance: SODIUM CHLORIDE
  4. LORAZEPAM. [Concomitant]
     Active Substance: LORAZEPAM
  5. ELITEK [Suspect]
     Active Substance: RASBURICASE
     Indication: BLOOD URIC ACID INCREASED
     Route: 042
     Dates: start: 20151210, end: 20151210
  6. CEFEPIME [Concomitant]
     Active Substance: CEFEPIME HYDROCHLORIDE
  7. VANCO [Concomitant]
     Active Substance: VANCOMYCIN
  8. ONDANSETRON [Concomitant]
     Active Substance: ONDANSETRON
  9. CYTARABINE. [Concomitant]
     Active Substance: CYTARABINE
  10. PROPOFOL. [Concomitant]
     Active Substance: PROPOFOL

REACTIONS (2)
  - Drug ineffective [None]
  - Product quality issue [None]

NARRATIVE: CASE EVENT DATE: 20151210
